FAERS Safety Report 11150178 (Version 1)
Quarter: 2015Q2

REPORT INFORMATION
  Report Type: Spontaneous
  Country: TR (occurrence: TR)
  Receive Date: 20150529
  Receipt Date: 20150529
  Transmission Date: 20150821
  Serious: Yes (Death)
  Sender: FDA-Public Use
  Company Number: TR-ABBVIE-15P-161-1399567-00

PATIENT
  Age: 90 Year
  Sex: Male

DRUGS (4)
  1. SODIUM VALPROATE [Suspect]
     Active Substance: VALPROATE SODIUM
     Dosage: 2 MG/KG/HR MAINTENANCE FOR 12 HOURS
     Route: 042
  2. SODIUM VALPROATE [Suspect]
     Active Substance: VALPROATE SODIUM
     Route: 042
  3. SODIUM VALPROATE [Suspect]
     Active Substance: VALPROATE SODIUM
     Indication: STATUS EPILEPTICUS
     Dosage: 20 MG/KG IN 10 ML SALINE OVER 15 MINUTES
     Route: 042
  4. DIAZEPAM. [Concomitant]
     Active Substance: DIAZEPAM
     Indication: STATUS EPILEPTICUS
     Dosage: UNTIL SEIZURE CONTROL OR MAX DOSE OF 100 MCG/KG/MIN

REACTIONS (1)
  - Status epilepticus [Fatal]
